FAERS Safety Report 6312751-2 (Version None)
Quarter: 2009Q3

REPORT INFORMATION
  Report Type: 
  Country: None (occurrence: None)
  Receive Date: 20090818
  Receipt Date: 20090813
  Transmission Date: 20100115
  Serious: Yes (Death, Hospitalization)
  Sender: FDA-Public Use
  Company Number: JP-BRISTOL-MYERS SQUIBB COMPANY-14741615

PATIENT
  Age: 78 Year
  Sex: Male
  Weight: 58 kg

DRUGS (21)
  1. ERBITUX [Suspect]
     Indication: COLON CANCER
     Dosage: 24MAR09-2JUN09:400MG(69 DAYS);ON 17MAR09- 640 MG
     Route: 042
     Dates: start: 20090317, end: 20090602
  2. IRINOTECAN HCL [Suspect]
     Indication: COLON CANCER
     Route: 042
     Dates: start: 20090424, end: 20090424
  3. AVASTIN [Suspect]
     Indication: COLON CANCER
     Dosage: TAKEN ON 21OCT2008
     Route: 042
     Dates: start: 20081007, end: 20090227
  4. RINDERON [Suspect]
     Indication: PROPHYLAXIS
     Dosage: TABS
     Route: 048
     Dates: start: 20090602, end: 20090630
  5. PREDONINE [Suspect]
     Indication: PROPHYLAXIS
     Route: 048
     Dates: start: 20090701, end: 20090702
  6. LOXONIN [Suspect]
     Indication: PYREXIA
     Dosage: TABS
     Route: 048
     Dates: start: 20090609, end: 20090615
  7. VOLTAREN [Suspect]
     Indication: PYREXIA
     Dosage: TABS
     Route: 048
     Dates: start: 20090616, end: 20090629
  8. POLARAMINE [Concomitant]
     Indication: PREMEDICATION
     Route: 042
     Dates: start: 20090317, end: 20090607
  9. DECADRON [Concomitant]
     Indication: PREMEDICATION
     Route: 042
     Dates: start: 20090317, end: 20090507
  10. NAUZELIN [Concomitant]
     Indication: ANTIEMETIC SUPPORTIVE CARE
     Dosage: TABS
     Route: 048
     Dates: start: 20090504, end: 20090511
  11. GRANISETRON HCL [Concomitant]
     Indication: ANTIEMETIC SUPPORTIVE CARE
     Route: 042
     Dates: start: 20090424, end: 20090424
  12. INDISETRON HCL [Concomitant]
     Indication: ANTIEMETIC SUPPORTIVE CARE
     Dosage: ORAL
     Route: 042
     Dates: start: 20090602, end: 20090630
  13. NOVAMIN [Concomitant]
     Indication: ANTIEMETIC SUPPORTIVE CARE
     Dosage: FORMULATION=TABS
     Route: 048
     Dates: start: 20090701, end: 20090706
  14. SEROTONE [Concomitant]
     Indication: ANTIEMETIC SUPPORTIVE CARE
     Dosage: FORMULATION=TABS
     Route: 048
     Dates: start: 20090701, end: 20090706
  15. BLOPRESS [Concomitant]
     Indication: HYPERTENSION
     Dosage: FORMULATION=TABS
     Route: 048
     Dates: start: 20080801, end: 20090630
  16. HALCION [Concomitant]
     Indication: INSOMNIA
     Dosage: TABS
     Route: 048
     Dates: end: 20090705
  17. MUCOSTA [Concomitant]
     Indication: GASTRIC ULCER
     Dosage: TABS
     Route: 048
     Dates: start: 20090609, end: 20090629
  18. PURSENNID [Concomitant]
     Indication: CONSTIPATION
     Dosage: TABS
     Route: 048
     Dates: start: 20090616, end: 20090705
  19. GASTER D [Concomitant]
     Indication: GASTRIC ULCER
     Route: 048
     Dates: start: 20090630, end: 20090701
  20. AMINOFLUID [Concomitant]
     Dosage: 500-1500ML,500-1500ML;01-07MAY09(6DAYS);30JUN09-10JUL09(10DAYS)
     Route: 042
     Dates: start: 20090501, end: 20090710
  21. SOLDEM 3A [Concomitant]
     Route: 042
     Dates: start: 20090501, end: 20090507

REACTIONS (4)
  - DECREASED APPETITE [None]
  - GASTRIC ULCER HAEMORRHAGE [None]
  - MALAISE [None]
  - NAUSEA [None]
